FAERS Safety Report 9931052 (Version 1)
Quarter: 2014Q1

REPORT INFORMATION
  Report Type: Report from Study
  Country: AU (occurrence: AU)
  Receive Date: 20140227
  Receipt Date: 20140227
  Transmission Date: 20141002
  Serious: Yes (Other)
  Sender: FDA-Public Use
  Company Number: PHHY2014AU022379

PATIENT
  Age: 86 Year
  Sex: Female

DRUGS (32)
  1. ACLASTA [Suspect]
     Dosage: 5 MG/100 ML
     Route: 042
     Dates: start: 20091027
  2. ACLASTA [Suspect]
     Dosage: 5 MG/100 ML
     Route: 042
     Dates: start: 20101021
  3. ACLASTA [Suspect]
     Dosage: 5 MG/100 ML
     Route: 042
     Dates: start: 20111024
  4. ACLASTA [Suspect]
     Dosage: 5 MG/100 ML
     Route: 042
     Dates: start: 20120215
  5. ACLASTA [Suspect]
     Dosage: 5 MG/100 ML
     Route: 042
     Dates: start: 20130228
  6. ACLASTA [Suspect]
     Dosage: 5 MG/100 ML
     Route: 042
     Dates: start: 20140206
  7. ARICEPT [Concomitant]
     Dosage: 1 DF, QD
     Dates: start: 20140219
  8. ASTRIX [Concomitant]
     Dosage: 1 DF, QD
     Dates: start: 20130810
  9. BETALOC [Concomitant]
     Dosage: 1 DF, QD
     Dates: start: 20130907
  10. BICOR [Concomitant]
     Dosage: 1 DF, QD
     Dates: start: 20140219
  11. BRILINTA [Concomitant]
     Dosage: 1 DF, BID
     Dates: start: 20140219
  12. CAL [Concomitant]
     Dosage: 1 DF, QD
     Dates: start: 20140219
  13. DOCUSATE SODIUM\SENNOSIDES [Concomitant]
     Dosage: 1 DF, TID
     Dates: start: 20140219
  14. DOCUSATE SODIUM\SENNOSIDES [Concomitant]
     Dosage: 1-2 NOCTE , PRN
     Dates: start: 20140219
  15. DIGOXIN [Concomitant]
     Dosage: 1 DF, QD
     Dates: start: 20130810
  16. ELOCON [Concomitant]
     Dosage: 0.1 %, QD (APPLY CREAM)
     Dates: start: 20131104
  17. ELOCON [Concomitant]
     Dosage: 0.1 %, QD (APPLY LOTION 2 DROPS ONCE DAILY IN INFECTED AREA)
     Dates: start: 20130810
  18. GAVISCON PEPPERMINT [Concomitant]
     Dosage: 927 MG, (20 ML, AFTER MEALS AND AT BED TIME)
     Dates: start: 20120427
  19. KARVEA [Concomitant]
     Dosage: 1 DF, QD
     Dates: start: 20140206
  20. LEXAPRO [Concomitant]
     Indication: DEPRESSION
     Dosage: 1 DF, QD (AT NIGHT WITH MEALS)
     Dates: start: 20140116
  21. LIPITOR [Concomitant]
     Indication: HYPERCHOLESTEROLAEMIA
     Dosage: 1 DF, QD
     Dates: start: 20140219
  22. MONODUR [Concomitant]
     Indication: MYOCARDIAL ISCHAEMIA
     Dosage: 0.5 DF, QD
     Dates: start: 20130810
  23. NASONEX [Concomitant]
     Dosage: 1 DF, BID
     Dates: start: 20130907
  24. NEO B12 [Concomitant]
     Dosage: 1 MG/ML, (EVERY MONTH FOR THREE MONTH)
     Route: 030
     Dates: start: 20140206
  25. NEO B12 [Concomitant]
     Dosage: 1 MG/ML, (ONCE EVENRY THREE MONTH)
     Route: 030
     Dates: start: 20140206
  26. NITRO DUR [Concomitant]
     Dosage: 1 DF, QD (APPLY ON SKIN MORNING AND TAKE IT OFF NIGHT TIME BEFORE BED TIME)
     Dates: start: 20131029
  27. NITROLINGUAL [Concomitant]
     Dosage: 1 DF, (PUFF UNDER TONGUE IF YOU NEED IT YOU CAN REPEAT FOR ANOTHER THREE)
     Route: 060
     Dates: start: 20140219
  28. NORVASC [Concomitant]
     Indication: DIVERTICULUM
     Dosage: 1 DF, QD (NIGHT)
     Dates: start: 20130810
  29. PANADOL OSTEO [Concomitant]
     Dosage: 1 DF, QID (IF REQUIRED)
     Dates: start: 20130810
  30. SOMAC CONTROL [Concomitant]
     Dosage: 1 DF, QD (AT NIGHT 30 MIN BEFORE DINNER)
     Dates: start: 20140219
  31. STALEVO [Concomitant]
     Dosage: 1 DF, BID
     Dates: start: 20140206
  32. STALEVO [Concomitant]
     Dosage: 1 DF, TID (AFTER TWO AND REASSESSMENT)
     Dates: start: 20140206

REACTIONS (7)
  - Vascular dementia [Unknown]
  - Depression [Unknown]
  - Parkinsonism [Unknown]
  - Osteoarthritis [Unknown]
  - Cardiac murmur [Unknown]
  - Diverticulum [Unknown]
  - Inappropriate schedule of drug administration [Unknown]
